FAERS Safety Report 6379710-5 (Version None)
Quarter: 2009Q3

REPORT INFORMATION
  Report Type: 
  Country: None (occurrence: None)
  Receive Date: 20090928
  Receipt Date: 20090915
  Transmission Date: 20100115
  Serious: Yes (Other)
  Sender: FDA-Public Use
  Company Number: BR-AVENTIS-200920718GDDC

PATIENT
  Age: 37 Year
  Sex: Male
  Weight: 100 kg

DRUGS (4)
  1. LANTUS [Suspect]
     Route: 058
  2. HUMALOG [Concomitant]
     Route: 058
  3. LOSARTAN [Concomitant]
     Indication: BLOOD PRESSURE
     Route: 048
  4. BENERVA [Concomitant]
     Route: 048

REACTIONS (7)
  - ABDOMINAL DISTENSION [None]
  - DRUG INEFFECTIVE [None]
  - DRY MOUTH [None]
  - HYPERGLYCAEMIA [None]
  - HYPOGLYCAEMIA [None]
  - SOMNOLENCE [None]
  - WEIGHT INCREASED [None]
